FAERS Safety Report 15671066 (Version 1)
Quarter: 2018Q4

REPORT INFORMATION
  Report Type: Spontaneous
  Country: FR (occurrence: FR)
  Receive Date: 20181129
  Receipt Date: 20181129
  Transmission Date: 20190205
  Serious: Yes (Hospitalization)
  Sender: FDA-Public Use
  Company Number: FR-TELIGENT, INC-IGIL20180670

PATIENT
  Age: 54 Year
  Sex: Female
  Weight: 74 kg

DRUGS (7)
  1. EMEND [Suspect]
     Active Substance: APREPITANT
     Indication: PROPHYLAXIS OF NAUSEA AND VOMITING
     Dosage: 125 MG
     Route: 048
     Dates: start: 20181009, end: 20181009
  2. POLARAMINE [Suspect]
     Active Substance: DEXCHLORPHENIRAMINE MALEATE
     Indication: PROPHYLAXIS
     Dosage: 5 MG
     Route: 042
     Dates: start: 20181009, end: 20181009
  3. CISPLATINE [Suspect]
     Active Substance: CISPLATIN
     Indication: ADENOCARCINOMA OF THE CERVIX
     Dosage: 113 MG
     Route: 041
     Dates: start: 20181009, end: 20181009
  4. ONDANSETRON [Suspect]
     Active Substance: ONDANSETRON
     Indication: PROPHYLAXIS OF NAUSEA AND VOMITING
     Dosage: 8 MG
     Route: 041
     Dates: start: 20181009, end: 20181009
  5. PACLITAXEL. [Suspect]
     Active Substance: PACLITAXEL
     Indication: ADENOCARCINOMA OF THE CERVIX
     Dosage: 246 MG
     Route: 041
     Dates: start: 20181009, end: 20181009
  6. RANITIDINE HYDROCHLORIDE. [Suspect]
     Active Substance: RANITIDINE HYDROCHLORIDE
     Indication: PROPHYLAXIS
     Dosage: 50 MG
     Route: 041
     Dates: start: 20181009, end: 20181009
  7. METHYLPREDNISOLONE. [Suspect]
     Active Substance: METHYLPREDNISOLONE
     Indication: PROPHYLAXIS
     Dosage: 120 MG
     Route: 041
     Dates: start: 20181009, end: 20181009

REACTIONS (4)
  - Dyspnoea [Recovered/Resolved]
  - Tremor [Recovered/Resolved]
  - Rash erythematous [Recovered/Resolved]
  - Hypersensitivity [Recovered/Resolved]

NARRATIVE: CASE EVENT DATE: 20181009
